FAERS Safety Report 8613445 (Version 3)
Quarter: 2012Q4

REPORT INFORMATION
  Report Type: 
  Country: US (occurrence: US)
  Receive Date: 20120613
  Receipt Date: 20120926
  Transmission Date: 20130627
  Serious: Yes (Hospitalization, Other)
  Sender: FDA-Public Use
  Company Number: US-ELI_LILLY_AND_COMPANY-US201206002348

PATIENT
  Age: 42 None
  Sex: Female
  Weight: 63.95 kg

DRUGS (8)
  1. BYETTA [Suspect]
     Indication: TYPE 2 DIABETES MELLITUS
     Dosage: 5 ug, bid
     Route: 058
     Dates: start: 201004, end: 201103
  2. BYETTA [Suspect]
     Dosage: 10 ug, UNK
     Route: 058
  3. BYETTA [Suspect]
     Dosage: 5 ug, bid
     Route: 058
     Dates: start: 201109, end: 201112
  4. MULTIVITAMIN [Concomitant]
     Route: 048
  5. FERROUS SULFATE [Concomitant]
     Dosage: 325 mg, qd
     Route: 048
  6. ASPIRIN                                 /USA/ [Concomitant]
     Dosage: 81 mg, qd
     Route: 048
  7. METFORMIN [Concomitant]
     Indication: TYPE 2 DIABETES MELLITUS
     Dosage: 1000 mg, UNK
     Dates: start: 200508, end: 200711
  8. METFORMIN [Concomitant]
     Dosage: 2000 mg, UNK
     Dates: start: 200808

REACTIONS (6)
  - Pancreatic carcinoma [Unknown]
  - Pancreatic cyst [Unknown]
  - Ulcer [Not Recovered/Not Resolved]
  - Neuropathy peripheral [Unknown]
  - Back pain [Unknown]
  - Dyspepsia [Unknown]
